FAERS Safety Report 4937658-4 (Version None)
Quarter: 2006Q1

REPORT INFORMATION
  Report Type: 
  Country: None (occurrence: None)
  Receive Date: 20060309
  Receipt Date: 20050414
  Transmission Date: 20060701
  Serious: Yes (Other)
  Sender: FDA-Public Use
  Company Number: US-MERCK-0504USA02972

PATIENT
  Sex: Female

DRUGS (6)
  1. VIOXX [Suspect]
     Route: 048
  2. NEURONTIN [Concomitant]
     Indication: DIZZINESS
     Route: 065
  3. PROZAC [Concomitant]
     Route: 065
  4. CLONAZEPAM [Concomitant]
     Indication: LOSS OF CONSCIOUSNESS
     Route: 065
  5. HYDROCODONE HYDROCHLORIDE [Concomitant]
     Indication: FIBROMYALGIA
     Route: 065
  6. ELAVIL [Concomitant]
     Indication: BLOOD DISORDER
     Route: 065

REACTIONS (8)
  - BLOOD DISORDER [None]
  - CARDIAC DISORDER [None]
  - EYE DISORDER [None]
  - MIGRAINE [None]
  - NERVOUS SYSTEM DISORDER [None]
  - NEURALGIA [None]
  - OEDEMA [None]
  - STOMACH DISCOMFORT [None]
